FAERS Safety Report 10208325 (Version 1)
Quarter: 2014Q2

REPORT INFORMATION
  Report Type: Report from Study
  Country: US (occurrence: US)
  Receive Date: 20140530
  Receipt Date: 20140530
  Transmission Date: 20141212
  Serious: Yes (Other)
  Sender: FDA-Public Use
  Company Number: US-SA-2014SA068150

PATIENT
  Sex: Male

DRUGS (4)
  1. LANTUS [Suspect]
     Indication: DIABETES MELLITUS
     Dosage: 30 UNITS IN MORNING, 32 UNITS EVENING
     Route: 065
  2. NOVOLOG [Suspect]
     Indication: PRODUCT USED FOR UNKNOWN INDICATION
     Route: 065
  3. LEVEMIR [Suspect]
     Indication: PRODUCT USED FOR UNKNOWN INDICATION
     Route: 065
  4. HUMALOG [Suspect]
     Indication: PRODUCT USED FOR UNKNOWN INDICATION
     Route: 065

REACTIONS (6)
  - Prostate cancer [Recovered/Resolved]
  - Colon cancer [Recovered/Resolved]
  - Infection [Unknown]
  - Bone disorder [Unknown]
  - Off label use [Unknown]
  - Glycosylated haemoglobin increased [Unknown]
